FAERS Safety Report 8018139-0 (Version None)
Quarter: 2012Q1

REPORT INFORMATION
  Report Type: 
  Country: None (occurrence: None)
  Receive Date: 20120103
  Receipt Date: 20111228
  Transmission Date: 20120608
  Serious: Yes (Hospitalization, Other)
  Sender: FDA-Public Use
  Company Number: FR-B.I. PHARMACEUTICALS,INC./RIDGEFIELD-2011-FF-01232FF

PATIENT
  Sex: Male

DRUGS (7)
  1. VENTOLIN [Concomitant]
     Dosage: 300 MCG
     Route: 055
  2. VALPROIC ACID [Suspect]
     Dosage: 900 MG
     Route: 048
     Dates: start: 20111104
  3. OXAZEPAM [Suspect]
     Dosage: 150 MG
     Route: 048
     Dates: start: 20111029
  4. BACLOFEN [Suspect]
     Dosage: 90 MG
     Route: 048
     Dates: end: 20111104
  5. ZOLPIDEM [Suspect]
     Dosage: 10 MG
     Route: 048
     Dates: start: 20111003
  6. TOPIRAMATE [Suspect]
     Dosage: 50 MG
     Route: 048
  7. SPIRIVA [Suspect]
     Dosage: 18 MCG
     Route: 055

REACTIONS (1)
  - CONFUSIONAL STATE [None]
